FAERS Safety Report 17626934 (Version 1)
Quarter: 2020Q2

REPORT INFORMATION
  Report Type: Spontaneous
  Country: US (occurrence: US)
  Receive Date: 20200405
  Receipt Date: 20200405
  Transmission Date: 20200713
  Serious: No
  Sender: FDA-Public Use
  Company Number: US-GALDERMA-US19077005

PATIENT
  Age: 18 Year
  Sex: Male

DRUGS (3)
  1. NEUTROGENA OIL-FREE SALICYLIC ACID ACNE WASH [Concomitant]
     Indication: PRODUCT USED FOR UNKNOWN INDICATION
  2. DIFFERIN GEL [Suspect]
     Active Substance: ADAPALENE
     Indication: ACNE CYSTIC
     Dosage: 0.1%
     Route: 061
     Dates: start: 20190706
  3. NEUTROGENA CLEAR FACE SPF 55 (CHEMICAL SUNSCREEN) [Concomitant]
     Indication: PROPHYLAXIS AGAINST SOLAR RADIATION

REACTIONS (1)
  - Drug ineffective [Not Recovered/Not Resolved]
